FAERS Safety Report 9736696 (Version 2)
Quarter: 2015Q3

REPORT INFORMATION
  Report Type: Spontaneous
  Country: US (occurrence: US)
  Receive Date: 20131206
  Receipt Date: 20150804
  Transmission Date: 20151125
  Serious: No
  Sender: FDA-Public Use
  Company Number: US-GILEAD-2009-0023574

PATIENT
  Age: 49 Year
  Sex: Female
  Weight: 81.65 kg

DRUGS (13)
  1. NOVOLOG [Suspect]
     Active Substance: INSULIN ASPART
  2. PLAVIX [Suspect]
     Active Substance: CLOPIDOGREL BISULFATE
  3. GABAPENTIN. [Suspect]
     Active Substance: GABAPENTIN
  4. BENAZEPRIL [Suspect]
     Active Substance: BENAZEPRIL HYDROCHLORIDE
  5. DICYCLOMINE [Suspect]
     Active Substance: DICYCLOMINE HYDROCHLORIDE
  6. LASIX [Suspect]
     Active Substance: FUROSEMIDE
  7. AZATHIOPRINE. [Suspect]
     Active Substance: AZATHIOPRINE
  8. ASPIRIN. [Suspect]
     Active Substance: ASPIRIN
  9. NASONEX [Suspect]
     Active Substance: MOMETASONE FUROATE
  10. CIPRO [Suspect]
     Active Substance: CIPROFLOXACIN HYDROCHLORIDE
  11. LETAIRIS [Suspect]
     Active Substance: AMBRISENTAN
     Indication: PULMONARY ARTERIAL HYPERTENSION
     Route: 048
     Dates: start: 20090716, end: 20090806
  12. IMDUR [Suspect]
     Active Substance: ISOSORBIDE MONONITRATE
  13. LANTUS [Suspect]
     Active Substance: INSULIN GLARGINE

REACTIONS (8)
  - Headache [Unknown]
  - Influenza like illness [Unknown]
  - Abdominal distension [Unknown]
  - Nasal congestion [Unknown]
  - Vision blurred [Unknown]
  - Musculoskeletal chest pain [Unknown]
  - Vomiting [Unknown]
  - Oropharyngeal pain [Unknown]
